FAERS Safety Report 13619303 (Version 1)
Quarter: 2017Q2

REPORT INFORMATION
  Report Type: Spontaneous
  Country: US (occurrence: US)
  Receive Date: 20170606
  Receipt Date: 20170606
  Transmission Date: 20170830
  Serious: Yes (Life-Threatening, Other)
  Sender: FDA-Public Use
  Company Number: None

PATIENT
  Age: 9 Year
  Sex: Male
  Weight: 31.95 kg

DRUGS (1)
  1. CHILDRENS ZYRTEC ALLERGY [Suspect]
     Active Substance: CETIRIZINE HYDROCHLORIDE
     Indication: SEASONAL ALLERGY
     Dosage: ?          QUANTITY:1 TABLET(S);?
     Route: 048
     Dates: start: 20170312, end: 20170327

REACTIONS (12)
  - Decreased appetite [None]
  - Affective disorder [None]
  - Abnormal behaviour [None]
  - Anxiety [None]
  - Chest discomfort [None]
  - Abdominal pain upper [None]
  - Fear [None]
  - Irritability [None]
  - Panic attack [None]
  - Crying [None]
  - Weight decreased [None]
  - Insomnia [None]

NARRATIVE: CASE EVENT DATE: 20170312
